FAERS Safety Report 21176261 (Version 1)
Quarter: 2022Q3

REPORT INFORMATION
  Report Type: Spontaneous
  Country: NL (occurrence: NL)
  Receive Date: 20220805
  Receipt Date: 20220805
  Transmission Date: 20221027
  Serious: Yes (Other)
  Sender: FDA-Public Use
  Company Number: None

PATIENT
  Sex: Male
  Weight: 101 kg

DRUGS (5)
  1. OXYCODONE [Suspect]
     Active Substance: OXYCODONE
     Indication: Procedural pain
     Dosage: 2 DOSAGE FORMS DAILY; 2X A DAY, OXYCODONE TABLET MGA 10MG / BRAND NAME NOT SPECIFIED, THERAPY END DA
     Dates: start: 202207
  2. IBUPROFEN [Concomitant]
     Active Substance: IBUPROFEN
     Indication: Product used for unknown indication
     Dosage: 400 MG (MILLIGRAM), IBUPROFEN 400MG / BRAND NAME NOT SPECIFIED, THERAPY START DATE AND END DATE : AS
  3. PREGABALIN [Concomitant]
     Active Substance: PREGABALIN
     Indication: Product used for unknown indication
     Dosage: 75 MG (MILLIGRAM), PREGABALINE 75MG / BRAND NAME NOT SPECIFIED, THERAPY START DATE AND END DATE : AS
  4. ACETAMINOPHEN [Concomitant]
     Active Substance: ACETAMINOPHEN
     Indication: Product used for unknown indication
     Dosage: 500 MG (MILLIGRAM), PARACETAMOL 500MG / BRAND NAME NOT SPECIFIED, THERAPY START DATE AND END DATE :
  5. DICLOFENAC POTASSIUM [Concomitant]
     Active Substance: DICLOFENAC POTASSIUM
     Indication: Product used for unknown indication
     Dosage: 50 MG (MILLIGRAM), DICLOFENAC POTASSIUM TABLET COATED 50MG / BRAND NAME NOT SPECIFIED, THERAPY START

REACTIONS (1)
  - Hallucination [Recovered/Resolved]
